FAERS Safety Report 5575859-5 (Version None)
Quarter: 2007Q4

REPORT INFORMATION
  Report Type: 
  Country: None (occurrence: None)
  Receive Date: 20071130
  Receipt Date: 20070727
  Transmission Date: 20080405
  Serious: No
  Sender: FDA-Public Use
  Company Number: US200707006920

PATIENT
  Age: 79 Year
  Sex: Male
  Weight: 83.9 kg

DRUGS (4)
  1. BYETTA [Suspect]
     Indication: TYPE 2 DIABETES MELLITUS
     Dosage: 10 UG, 2/D, SUBCUTANEOUS
     Route: 058
     Dates: start: 20070528
  2. METFORMIN HCL [Concomitant]
  3. AMARYL [Concomitant]
  4. PRANDIN /USA/ (REPAGLINIDE) [Concomitant]

REACTIONS (3)
  - DRUG EFFECT DECREASED [None]
  - GLYCOSYLATED HAEMOGLOBIN INCREASED [None]
  - WEIGHT INCREASED [None]
